FAERS Safety Report 20727150 (Version 3)
Quarter: 2022Q2

REPORT INFORMATION
  Report Type: Spontaneous
  Country: DE (occurrence: DE)
  Receive Date: 20220419
  Receipt Date: 20220503
  Transmission Date: 20220720
  Serious: Yes (Other)
  Sender: FDA-Public Use
  Company Number: DE-BoehringerIngelheim-2022-BI-165996

PATIENT
  Age: 60 Year
  Sex: Female

DRUGS (14)
  1. SPIRIVA RESPIMAT [Suspect]
     Active Substance: TIOTROPIUM BROMIDE
     Indication: Asthma
  2. SPIRIVA RESPIMAT [Suspect]
     Active Substance: TIOTROPIUM BROMIDE
     Indication: Chronic obstructive pulmonary disease
  3. Theophyllin-Ret.- Kapseln 350 mg [Concomitant]
     Indication: Asthma
     Dosage: 2 CAPSULES/DAY
  4. Theophyllin-Ret.- Kapseln 350 mg [Concomitant]
     Indication: Chronic obstructive pulmonary disease
  5. Flutiform 250/10 mcg [Concomitant]
     Indication: Asthma
     Dosage: 2X2 PUFFS
  6. Flutiform 250/10 mcg [Concomitant]
     Indication: Chronic obstructive pulmonary disease
  7. MONTELUKAST SODIUM [Concomitant]
     Active Substance: MONTELUKAST SODIUM
     Indication: Asthma
     Dosage: 1 PUFF
  8. MONTELUKAST SODIUM [Concomitant]
     Active Substance: MONTELUKAST SODIUM
     Indication: Chronic obstructive pulmonary disease
  9. ALBUTEROL [Concomitant]
     Active Substance: ALBUTEROL
     Indication: Asthma
     Dosage: NEARLY EVERY DAY 2 PUFFS SALBUTAMOL
  10. ALBUTEROL [Concomitant]
     Active Substance: ALBUTEROL
     Indication: Chronic obstructive pulmonary disease
  11. ESOMEPRAZOLE [Concomitant]
     Active Substance: ESOMEPRAZOLE
     Indication: Chronic disease
  12. LEVOTHYROXINE SODIUM [Concomitant]
     Active Substance: LEVOTHYROXINE SODIUM
     Indication: Chronic disease
  13. TELMISARTAN [Concomitant]
     Active Substance: TELMISARTAN
     Indication: Chronic disease
  14. TORSEMIDE [Concomitant]
     Active Substance: TORSEMIDE
     Indication: Chronic disease

REACTIONS (1)
  - Condition aggravated [Unknown]

NARRATIVE: CASE EVENT DATE: 20210101
